FAERS Safety Report 7416152-5 (Version None)
Quarter: 2011Q2

REPORT INFORMATION
  Report Type: 
  Country: None (occurrence: None)
  Receive Date: 20110414
  Receipt Date: 20110331
  Transmission Date: 20111010
  Serious: Yes (Hospitalization, Disabling)
  Sender: FDA-Public Use
  Company Number: US-BAYER-200924709NA

PATIENT
  Age: 78 Year
  Sex: Male
  Weight: 75.864 kg

DRUGS (38)
  1. SORAFENIB (RAF KINASE INHIBITOR) [Suspect]
     Indication: COLORECTAL CANCER METASTATIC
     Dosage: 400 MG, BID
     Route: 048
     Dates: start: 20090526, end: 20090609
  2. OXALIPLATIN [Suspect]
     Indication: COLORECTAL CANCER METASTATIC
     Dosage: DAILY DOSE 160 MG
     Route: 042
     Dates: start: 20090526, end: 20090526
  3. FLUOROURACIL [Suspect]
     Dosage: DAILY DOSE 750 MG
     Route: 040
     Dates: start: 20090707, end: 20090707
  4. FLUOROURACIL [Suspect]
     Dosage: DAILY DOSE 4475 MG
     Route: 042
     Dates: start: 20090707, end: 20090709
  5. METFORMIN [Concomitant]
     Indication: TYPE 2 DIABETES MELLITUS
     Dates: start: 20070101
  6. DEXAMETHASONE [Concomitant]
     Dosage: 10 MG (DAILY DOSE), ,
     Dates: start: 20090609, end: 20090609
  7. ADDITIONAL STUDY MEDICATION [Suspect]
     Route: 042
     Dates: start: 20090609, end: 20090609
  8. FLUOROURACIL [Suspect]
     Dosage: DAILY DOSE 4500 MG
     Route: 042
     Dates: start: 20090526, end: 20090528
  9. FLUOROURACIL [Suspect]
     Dosage: DAILY DOSE 750 MG
     Route: 040
     Dates: start: 20090609, end: 20090609
  10. ASPIRIN [Concomitant]
     Indication: VITAMIN SUPPLEMENTATION
     Dates: start: 20070101
  11. LISINOPRIL [Concomitant]
     Indication: HYPERTENSION
     Dates: start: 20070101
  12. ACETAMINOPHEN [Concomitant]
     Indication: PAIN
     Dosage: UNK UNK, PRN
     Dates: start: 20090526, end: 20091228
  13. ADDITIONAL STUDY MEDICATION [Suspect]
     Route: 042
     Dates: start: 20090707, end: 20090707
  14. ASPIRIN [Concomitant]
     Indication: ISCHAEMIC HEART DISEASE PROPHYLAXIS
     Dosage: 81 MG, UNK
     Dates: start: 20090519, end: 20091228
  15. AMLODIPINE [Concomitant]
     Indication: HYPERTENSION
     Dates: start: 20070101
  16. AMLODIPINE [Concomitant]
     Dosage: 5 MG, UNK
     Dates: start: 20080519, end: 20091228
  17. DEXAMETHASONE [Concomitant]
     Dosage: 10 MG (DAILY DOSE), ,
     Dates: start: 20090707, end: 20090707
  18. ATENOLOL [Concomitant]
     Indication: HYPERTENSION
     Dates: start: 20070101
  19. ATENOLOL [Concomitant]
     Dosage: 25 MG, UNK
     Dates: start: 20080519, end: 20091228
  20. LISINOPRIL [Concomitant]
     Dosage: 40 MG, UNK
     Dates: start: 20080519, end: 20091228
  21. SIMVASTATIN [Concomitant]
     Indication: HYPERLIPIDAEMIA
     Dates: start: 20070101
  22. ASCORBIC ACID [Concomitant]
     Indication: MEDICAL DIET
  23. ONDANSETRON [Concomitant]
     Dosage: 12 MG (DAILY DOSE), ,
     Dates: start: 20090707, end: 20090707
  24. OXALIPLATIN [Suspect]
     Dosage: DAILY DOSE 160 MG
     Route: 042
     Dates: start: 20090707, end: 20090707
  25. ADDITIONAL STUDY MEDICATION [Suspect]
     Indication: COLORECTAL CANCER METASTATIC
     Dosage: DAILY DOSE 750 MG
     Route: 042
     Dates: start: 20090526, end: 20090526
  26. FLUOROURACIL [Suspect]
     Dosage: DAILY DOSE 4450 MG
     Route: 042
     Dates: start: 20090609, end: 20090611
  27. TAMSULOSIN [Concomitant]
     Indication: BENIGN PROSTATIC HYPERPLASIA
     Dates: start: 20070101
  28. TAMSULOSIN [Concomitant]
     Dosage: 0.4 MG, UNK
     Dates: start: 20080510, end: 20091228
  29. METFORMIN [Concomitant]
     Dosage: 500 MG, UNK
     Dates: start: 20080519, end: 20091228
  30. HEPARIN [Concomitant]
     Indication: THROMBOSIS PROPHYLAXIS
     Dosage: UNK
     Dates: start: 20090623, end: 20090623
  31. FLUOROURACIL [Suspect]
     Indication: COLORECTAL CANCER METASTATIC
     Dosage: DAILY DOSE 750 MG
     Route: 040
     Dates: start: 20090526, end: 20090526
  32. ASCORBIC ACID [Concomitant]
     Indication: VITAMIN SUPPLEMENTATION
     Dates: start: 20090519, end: 20091228
  33. DEXAMETHASONE [Concomitant]
     Indication: THROMBOSIS PROPHYLAXIS
     Dosage: 10 MG (DAILY DOSE), ,
     Dates: start: 20090526, end: 20090526
  34. ONDANSETRON [Concomitant]
     Dosage: 12 MG (DAILY DOSE), ,
     Dates: start: 20090609, end: 20090609
  35. SORAFENIB (RAF KINASE INHIBITOR) [Suspect]
     Dosage: 400 MG, QD
     Route: 048
     Dates: start: 20090609, end: 20090615
  36. OXALIPLATIN [Suspect]
     Dosage: DAILY DOSE 155 MG
     Route: 042
     Dates: start: 20090609, end: 20090609
  37. SIMVASTATIN [Concomitant]
     Dosage: 40 MG, UNK
     Dates: start: 20090519, end: 20091228
  38. ONDANSETRON [Concomitant]
     Indication: PREMEDICATION
     Dosage: 12 MG (DAILY DOSE), ,
     Dates: start: 20090526, end: 20090526

REACTIONS (4)
  - CELLULITIS [None]
  - OSTEOMYELITIS [None]
  - DIABETIC FOOT INFECTION [None]
  - SKIN ULCER [None]
